FAERS Safety Report 15360496 (Version 3)
Quarter: 2018Q4

REPORT INFORMATION
  Report Type: Report from Study
  Country: US (occurrence: US)
  Receive Date: 20180907
  Receipt Date: 20181126
  Transmission Date: 20190204
  Serious: Yes (Other)
  Sender: FDA-Public Use
  Company Number: US-AMGEN-USASL2018119708

PATIENT
  Age: 41 Year
  Sex: Female

DRUGS (3)
  1. ENBREL [Suspect]
     Active Substance: ETANERCEPT
     Indication: RHEUMATOID ARTHRITIS
     Dosage: 50 MG, QWK
     Route: 065
     Dates: start: 20180821, end: 20180904
  2. ENBREL [Suspect]
     Active Substance: ETANERCEPT
     Dosage: 50 MG, QWK
     Route: 065
     Dates: start: 201811
  3. ENBREL [Suspect]
     Active Substance: ETANERCEPT
     Dosage: 50 MG, QWK
     Route: 065
     Dates: start: 20180906, end: 201810

REACTIONS (14)
  - Pain [Unknown]
  - Malaise [Unknown]
  - Injection site erythema [Not Recovered/Not Resolved]
  - Oropharyngeal pain [Unknown]
  - Rheumatoid arthritis [Not Recovered/Not Resolved]
  - Nasal congestion [Unknown]
  - Injection site urticaria [Recovering/Resolving]
  - Injection site warmth [Recovering/Resolving]
  - Hysterectomy [Unknown]
  - Injection site swelling [Not Recovered/Not Resolved]
  - Headache [Unknown]
  - Injection site pain [Not Recovered/Not Resolved]
  - Injection site discomfort [Recovering/Resolving]
  - Injection site discolouration [Not Recovered/Not Resolved]

NARRATIVE: CASE EVENT DATE: 201808
